FAERS Safety Report 4636059-6 (Version None)
Quarter: 2005Q2

REPORT INFORMATION
  Report Type: 
  Country: None (occurrence: None)
  Receive Date: 20050331
  Receipt Date: 20040504
  Transmission Date: 20051028
  Serious: Yes (Hospitalization)
  Sender: FDA-Public Use
  Company Number: 200412214BCC

PATIENT
  Age: 73 Year
  Sex: Male
  Weight: 77.1115 kg

DRUGS (9)
  1. ALEVE [Suspect]
     Indication: ARTHRITIS
     Dosage: 660 MG, QD, ORAL;  440 MG, QD, ORAL;  440 MG, QD, ORAL;  220 MG, QD, ORAL
     Route: 048
     Dates: start: 20021201, end: 20030501
  2. ALEVE [Suspect]
     Indication: ARTHRITIS
     Dosage: 660 MG, QD, ORAL;  440 MG, QD, ORAL;  440 MG, QD, ORAL;  220 MG, QD, ORAL
     Route: 048
     Dates: start: 20030501, end: 20040101
  3. ALEVE [Suspect]
     Indication: ARTHRITIS
     Dosage: 660 MG, QD, ORAL;  440 MG, QD, ORAL;  440 MG, QD, ORAL;  220 MG, QD, ORAL
     Route: 048
     Dates: start: 20040201, end: 20040427
  4. ALEVE [Suspect]
     Indication: ARTHRITIS
     Dosage: 660 MG, QD, ORAL;  440 MG, QD, ORAL;  440 MG, QD, ORAL;  220 MG, QD, ORAL
     Route: 048
     Dates: start: 20040427
  5. COZAAR [Concomitant]
  6. CATAPRES [Concomitant]
  7. ACETAMINOPHEN W/ CODEINE [Concomitant]
  8. PLAVIX [Concomitant]
  9. NORVASC [Concomitant]

REACTIONS (2)
  - BLEEDING TIME PROLONGED [None]
  - RECTAL HAEMORRHAGE [None]
